FAERS Safety Report 7774401-8 (Version None)
Quarter: 2011Q3

REPORT INFORMATION
  Report Type: 
  Country: None (occurrence: None)
  Receive Date: 20110923
  Receipt Date: 20110912
  Transmission Date: 20111222
  Serious: Yes (Hospitalization, Other)
  Sender: FDA-Public Use
  Company Number: US-BAXTER-2011BH029013

PATIENT
  Sex: Male

DRUGS (6)
  1. DIANEAL [Suspect]
     Route: 010
     Dates: start: 20110705
  2. DIANEAL [Suspect]
     Route: 033
  3. DIANEAL [Suspect]
     Indication: PERITONEAL DIALYSIS
     Route: 033
  4. DIANEAL [Suspect]
     Route: 010
  5. DIANEAL [Suspect]
     Route: 010
     Dates: start: 20110624
  6. DIANEAL [Suspect]
     Route: 033

REACTIONS (6)
  - HERNIA [None]
  - ABDOMINAL ABSCESS [None]
  - ADHESION [None]
  - ABDOMINAL PAIN [None]
  - SEPSIS [None]
  - PERITONITIS BACTERIAL [None]
